FAERS Safety Report 25689110 (Version 1)
Quarter: 2025Q3

REPORT INFORMATION
  Report Type: Spontaneous
  Country: US (occurrence: US)
  Receive Date: 20250818
  Receipt Date: 20250818
  Transmission Date: 20251020
  Serious: Yes (Other)
  Sender: AUROBINDO
  Company Number: US-AUROBINDO-AUR-APL-2025-041675

PATIENT
  Age: 37 Year
  Sex: Female

DRUGS (2)
  1. MYCOPHENOLIC ACID [Suspect]
     Active Substance: MYCOPHENOLIC ACID
     Indication: Idiopathic interstitial pneumonia
  2. PREDNISONE [Suspect]
     Active Substance: PREDNISONE
     Indication: Idiopathic interstitial pneumonia
     Route: 065

REACTIONS (1)
  - Drug ineffective [Unknown]
